FAERS Safety Report 16881529 (Version 1)
Quarter: 2019Q4

REPORT INFORMATION
  Report Type: Spontaneous
  Country: TR (occurrence: TR)
  Receive Date: 20191003
  Receipt Date: 20191003
  Transmission Date: 20200122
  Serious: Yes (Other)
  Sender: FDA-Public Use
  Company Number: TR-INCYTE CORPORATION-2019IN009753

PATIENT

DRUGS (2)
  1. JAKAVI [Suspect]
     Active Substance: RUXOLITINIB
     Indication: PRIMARY MYELOFIBROSIS
     Dosage: 10 MG, UNK
     Route: 048
     Dates: start: 20181128, end: 20190920
  2. JAKAVI [Suspect]
     Active Substance: RUXOLITINIB
     Indication: SPLENOMEGALY

REACTIONS (1)
  - Lymph node tuberculosis [Unknown]

NARRATIVE: CASE EVENT DATE: 20190731
